FAERS Safety Report 6829739-5 (Version None)
Quarter: 2010Q3

REPORT INFORMATION
  Report Type: 
  Country: None (occurrence: None)
  Receive Date: 20100709
  Receipt Date: 20070525
  Transmission Date: 20110219
  Serious: No
  Sender: FDA-Public Use
  Company Number: US-PFIZER INC-2007015874

PATIENT
  Sex: Female
  Weight: 65.8 kg

DRUGS (14)
  1. CHANTIX [Suspect]
     Indication: SMOKING CESSATION THERAPY
     Dates: start: 20070222
  2. ROBAXIN [Concomitant]
  3. PIROXICAM [Concomitant]
  4. OXYCODONE HCL [Concomitant]
  5. GABAPENTIN [Concomitant]
  6. FAMOTIDINE [Concomitant]
  7. SYNTHROID [Concomitant]
  8. FUROSEMIDE [Concomitant]
  9. POTASSIUM [Concomitant]
  10. TEMAZEPAM [Concomitant]
  11. LESCOL [Concomitant]
  12. XANAX [Concomitant]
  13. VENTOLIN [Concomitant]
  14. CIPROFLOXACIN [Concomitant]

REACTIONS (2)
  - HOT FLUSH [None]
  - NAUSEA [None]
